FAERS Safety Report 5134786-8 (Version None)
Quarter: 2006Q4

REPORT INFORMATION
  Report Type: 
  Country: None (occurrence: None)
  Receive Date: 20061025
  Receipt Date: 20061019
  Transmission Date: 20070319
  Serious: Yes (Other)
  Sender: FDA-Public Use
  Company Number: IT-MERCK-0610ITA00032

PATIENT
  Age: 59 Year
  Sex: Female

DRUGS (1)
  1. VYTORIN [Suspect]
     Route: 048
     Dates: start: 20060101, end: 20060801

REACTIONS (1)
  - OEDEMA PERIPHERAL [None]
